FAERS Safety Report 9287631 (Version 1)
Quarter: 2013Q2

REPORT INFORMATION
  Report Type: Spontaneous
  Country: GB (occurrence: GB)
  Receive Date: 20130514
  Receipt Date: 20130514
  Transmission Date: 20140414
  Serious: Yes (Other)
  Sender: FDA-Public Use
  Company Number: GB-ACCORD-017541

PATIENT
  Age: 43 Year
  Sex: Male
  Weight: 77.7 kg

DRUGS (7)
  1. QUETIAPINE FUMARATE [Suspect]
     Indication: PRODUCT USED FOR UNKNOWN INDICATION
     Dates: start: 20130218
  2. ZOPICLONE [Concomitant]
     Dates: start: 20130326, end: 20130402
  3. OMEPRAZOLE [Concomitant]
     Dates: start: 20130125, end: 20130401
  4. MIRTAZAPINE [Concomitant]
     Dates: start: 20121224
  5. PENTASA [Concomitant]
     Dates: start: 20130325, end: 20130422
  6. VENLALIC XL [Concomitant]
     Dates: start: 20121224
  7. LORAZEPAM [Concomitant]
     Dates: start: 20130325, end: 20130408

REACTIONS (3)
  - Bradyphrenia [Recovered/Resolved]
  - Poor quality sleep [Unknown]
  - Sedation [Unknown]
